FAERS Safety Report 6565672-4 (Version None)
Quarter: 2010Q1

REPORT INFORMATION
  Report Type: 
  Country: None (occurrence: None)
  Receive Date: 20100126
  Receipt Date: 20100122
  Transmission Date: 20100710
  Serious: Yes (Hospitalization)
  Sender: FDA-Public Use
  Company Number: 1000011426

PATIENT
  Age: 59 Year
  Sex: Female

DRUGS (11)
  1. SAVELLA [Suspect]
     Indication: FIBROMYALGIA
     Dosage: SEE IMAGE
     Route: 048
     Dates: start: 20091101, end: 20091101
  2. SAVELLA [Suspect]
     Indication: FIBROMYALGIA
     Dosage: SEE IMAGE
     Route: 048
     Dates: start: 20091101, end: 20091101
  3. SAVELLA [Suspect]
     Indication: FIBROMYALGIA
     Dosage: SEE IMAGE
     Route: 048
     Dates: start: 20091101, end: 20091101
  4. SAVELLA [Suspect]
     Indication: FIBROMYALGIA
     Dosage: SEE IMAGE
     Route: 048
     Dates: start: 20091101
  5. DIGITEK [Concomitant]
  6. METOPROLOL TARTRATE [Concomitant]
  7. CIMETIDINE [Concomitant]
  8. GLIPIZIDE [Concomitant]
  9. LANTUS [Concomitant]
  10. LASIX [Concomitant]
  11. SIMVASTATIN [Concomitant]

REACTIONS (2)
  - CARDIOMYOPATHY [None]
  - HYPERTENSION [None]
